FAERS Safety Report 8819334 (Version 1)
Quarter: 2012Q4

REPORT INFORMATION
  Report Type: 
  Country: FR (occurrence: FR)
  Receive Date: 20121001
  Receipt Date: 20121001
  Transmission Date: 20130627
  Serious: Yes (Death)
  Sender: FDA-Public Use
  Company Number: FR-JNJFOC-20120712692

PATIENT
  Age: 62 Year
  Sex: Male

DRUGS (2)
  1. HALDOL DECANOATE [Suspect]
     Indication: VOMITING
     Route: 042
     Dates: start: 20120724
  2. HALDOL [Suspect]
     Indication: VOMITING
     Route: 042
     Dates: start: 20120724

REACTIONS (4)
  - Disease progression [Fatal]
  - Drug name confusion [Unknown]
  - Medication error [Unknown]
  - Incorrect route of drug administration [Unknown]
